FAERS Safety Report 4432289-7 (Version None)
Quarter: 2004Q3

REPORT INFORMATION
  Report Type: 
  Country: None (occurrence: None)
  Receive Date: 20040819
  Receipt Date: 20040806
  Transmission Date: 20050211
  Serious: Yes (Death, Hospitalization)
  Sender: FDA-Public Use
  Company Number: AZAUS200400046

PATIENT
  Age: 73 Year
  Sex: Male
  Weight: 95 kg

DRUGS (5)
  1. VIDAZA [Suspect]
     Indication: MYELODYSPLASTIC SYNDROME
     Dosage: 75 MG/M2 (160 MG), SUBCUTANEOUS
     Route: 058
     Dates: start: 20040802, end: 20040804
  2. TOPROL (METOPROLOL SUCCINATE) [Concomitant]
  3. ALTACE [Concomitant]
  4. NIASPAN [Concomitant]
  5. PROCRIT (ERYTHROPOIETIN) [Concomitant]

REACTIONS (9)
  - COMA [None]
  - DIALYSIS [None]
  - DIARRHOEA [None]
  - HEPATIC FAILURE [None]
  - HYPERKALAEMIA [None]
  - HYPOTENSION [None]
  - NAUSEA [None]
  - RENAL FAILURE [None]
  - VOMITING [None]
